FAERS Safety Report 6590696-0 (Version None)
Quarter: 2010Q1

REPORT INFORMATION
  Report Type: 
  Country: None (occurrence: None)
  Receive Date: 20100219
  Receipt Date: 20100215
  Transmission Date: 20100710
  Serious: Yes (Death, Life-Threatening)
  Sender: FDA-Public Use
  Company Number: D0066520A

PATIENT
  Sex: Female

DRUGS (13)
  1. LAMICTAL [Suspect]
     Indication: EPILEPSY
     Route: 048
     Dates: start: 20070429, end: 20070617
  2. COTRIM [Suspect]
     Indication: CYSTITIS
     Route: 048
     Dates: start: 20070613, end: 20070616
  3. KARVEA [Suspect]
     Dosage: 150MG PER DAY
     Route: 048
     Dates: start: 20070517, end: 20070604
  4. CLEXANE [Suspect]
     Indication: THROMBOSIS PROPHYLAXIS
     Dosage: .4ML PER DAY
     Route: 058
     Dates: start: 20070517, end: 20070604
  5. TOREM [Suspect]
     Dosage: 5MG IN THE MORNING
     Route: 048
     Dates: start: 20070523, end: 20070605
  6. FOLSAN [Suspect]
     Route: 048
     Dates: start: 20070521, end: 20070615
  7. PANTOZOL [Suspect]
     Indication: PROPHYLAXIS
     Route: 048
     Dates: start: 20070531
  8. FENISTIL [Suspect]
     Indication: SKIN LESION
     Route: 048
     Dates: start: 20070601, end: 20070615
  9. HEPARIN [Suspect]
     Indication: THROMBOSIS PROPHYLAXIS
     Dosage: 5000IU TWICE PER DAY
     Route: 058
     Dates: start: 20070604, end: 20070605
  10. APROVEL [Suspect]
     Dosage: 150MG PER DAY
     Route: 048
     Dates: start: 20070605, end: 20070618
  11. LIQUAEMIN INJ [Suspect]
     Indication: THROMBOSIS PROPHYLAXIS
     Dosage: 5000IU TWICE PER DAY
     Route: 058
     Dates: start: 20070605
  12. MOVICOL [Suspect]
     Indication: CONSTIPATION
     Dates: start: 20070605
  13. MULTIPLE MEDICATION [Concomitant]
     Route: 065

REACTIONS (17)
  - BLISTER [None]
  - CONSTIPATION [None]
  - CYSTITIS [None]
  - HYPERLIPIDAEMIA [None]
  - HYPERSENSITIVITY [None]
  - HYPOKALAEMIA [None]
  - HYPONATRAEMIA [None]
  - LIP EROSION [None]
  - ORAL CANDIDIASIS [None]
  - PAIN OF SKIN [None]
  - PRURITUS [None]
  - PYREXIA [None]
  - RASH [None]
  - RASH MACULAR [None]
  - RESTLESSNESS [None]
  - SKIN LESION [None]
  - STEVENS-JOHNSON SYNDROME [None]
